FAERS Safety Report 4439692-X (Version None)
Quarter: 2004Q3

REPORT INFORMATION
  Report Type: 
  Country: None (occurrence: None)
  Receive Date: 20040831
  Receipt Date: 20040818
  Transmission Date: 20050211
  Serious: Yes (Hospitalization)
  Sender: FDA-Public Use
  Company Number: 2004054407

PATIENT
  Age: 10 Year
  Sex: Male
  Weight: 31 kg

DRUGS (1)
  1. ZITHROMAX [Suspect]
     Indication: INFECTION PROPHYLAXIS
     Dosage: 625 MG (250 MG, UNKNOWN), ORAL
     Route: 048
     Dates: start: 20040804

REACTIONS (1)
  - CONVERSION DISORDER [None]
